FAERS Safety Report 8886831 (Version 2)
Quarter: 2012Q4

REPORT INFORMATION
  Report Type: 
  Country: US (occurrence: US)
  Receive Date: 20121105
  Receipt Date: 20121221
  Transmission Date: 20130627
  Serious: Yes (Life-Threatening, Congenital Anomaly, Other)
  Sender: FDA-Public Use
  Company Number: US-PFIZER INC-2012269124

PATIENT
  Sex: Male
  Weight: 3.5 kg

DRUGS (9)
  1. ZOLOFT [Suspect]
     Indication: DEPRESSION
     Dosage: 50mg one tablet daily by mouth
     Route: 064
     Dates: start: 2001, end: 201206
  2. ZOLOFT [Suspect]
     Indication: ANXIETY
     Dosage: 25mg by orally daily
     Route: 064
     Dates: start: 20101215
  3. CLOMID [Concomitant]
     Dosage: UNK
     Route: 064
  4. FOLIC ACID [Concomitant]
     Dosage: UNK
     Route: 064
  5. AMBIEN [Concomitant]
     Dosage: take half to one tablet everyday
     Route: 064
  6. MACROBID [Concomitant]
     Dosage: UNK
     Route: 064
  7. CHERATUSSIN AC [Concomitant]
     Dosage: UNK
     Route: 064
  8. PRO-AIR [Concomitant]
     Dosage: UNK
     Route: 064
  9. PRENATAL VITAMINS [Concomitant]
     Dosage: take one tablet by mouth daily
     Route: 064
     Dates: start: 20110301

REACTIONS (3)
  - Maternal exposure timing unspecified [Unknown]
  - Craniosynostosis [Unknown]
  - Fallot^s tetralogy [Unknown]
